FAERS Safety Report 17219077 (Version 6)
Quarter: 2021Q3

REPORT INFORMATION
  Report Type: Report from Study
  Country: JP (occurrence: JP)
  Receive Date: 20191231
  Receipt Date: 20210928
  Transmission Date: 20211014
  Serious: Yes (Death, Life-Threatening, Other)
  Sender: FDA-Public Use
  Company Number: JP-PFIZER INC-2019559038

PATIENT
  Age: 67 Year
  Sex: Female
  Weight: 39.9 kg

DRUGS (9)
  1. BESPONSA [Suspect]
     Active Substance: INOTUZUMAB OZOGAMICIN
     Dosage: 0.5 MG/M2, DAILY
     Route: 041
     Dates: start: 20191226, end: 20191226
  2. ZOLPIDEM [Concomitant]
     Active Substance: ZOLPIDEM TARTRATE
     Indication: INSOMNIA
     Dosage: 0.5 MG, 1X/DAY
     Route: 048
     Dates: end: 20200127
  3. BAKTAR [Concomitant]
     Active Substance: SULFAMETHOXAZOLE\TRIMETHOPRIM
     Indication: ANTIBIOTIC PROPHYLAXIS
     Dosage: 1 TABLET, 1X/DAY
     Route: 048
     Dates: end: 20200127
  4. BESPONSA [Suspect]
     Active Substance: INOTUZUMAB OZOGAMICIN
     Dosage: 0.5 MG/M2, DAILY
     Route: 041
     Dates: start: 20200102, end: 20200102
  5. BESPONSA [Suspect]
     Active Substance: INOTUZUMAB OZOGAMICIN
     Dosage: 0.8 MG/M2, DAILY
     Route: 041
     Dates: start: 20200121, end: 20200121
  6. LANSOPRAZOLE. [Concomitant]
     Active Substance: LANSOPRAZOLE
     Indication: PROPHYLAXIS AGAINST GASTROINTESTINAL ULCER
     Dosage: 10 MG, 1X/DAY
     Route: 048
     Dates: end: 20200127
  7. BESPONSA [Suspect]
     Active Substance: INOTUZUMAB OZOGAMICIN
     Indication: ACUTE LYMPHOCYTIC LEUKAEMIA RECURRENT
     Dosage: 0.8 MG/M2, DAILY
     Route: 041
     Dates: start: 20191219, end: 20191219
  8. METHYCOBAL [Concomitant]
     Active Substance: METHYLCOBALAMIN
     Indication: NEUROPATHY PERIPHERAL
     Dosage: 500 UG, 3X/DAY
     Route: 048
     Dates: end: 20200127
  9. TARLIGE [Concomitant]
     Active Substance: MIROGABALIN BESYLATE
     Indication: POST HERPETIC NEURALGIA
     Dosage: 10 MG, 2X/DAY
     Route: 048
     Dates: end: 20200127

REACTIONS (7)
  - Blood creatinine increased [Unknown]
  - Platelet count decreased [Not Recovered/Not Resolved]
  - Blood glucose increased [Unknown]
  - C-reactive protein increased [Unknown]
  - Neoplasm progression [Fatal]
  - Conjunctival haemorrhage [Not Recovered/Not Resolved]
  - Blood potassium increased [Unknown]

NARRATIVE: CASE EVENT DATE: 20191204
